FAERS Safety Report 9841891 (Version 1)
Quarter: 2014Q1

REPORT INFORMATION
  Report Type: Spontaneous
  Country: US (occurrence: US)
  Receive Date: 20140124
  Receipt Date: 20140124
  Transmission Date: 20141002
  Serious: No
  Sender: FDA-Public Use
  Company Number: US-GILEAD-2014-0092625

PATIENT
  Sex: Female

DRUGS (2)
  1. TRUVADA [Suspect]
     Indication: HEPATITIS B
     Dosage: 1 DF, UNK
     Route: 065
  2. TRUVADA [Suspect]
     Indication: OFF LABEL USE

REACTIONS (2)
  - Pregnancy [Not Recovered/Not Resolved]
  - Off label use [Unknown]
